FAERS Safety Report 5226563-4 (Version None)
Quarter: 2007Q1

REPORT INFORMATION
  Report Type: 
  Country: None (occurrence: None)
  Receive Date: 20070201
  Receipt Date: 20070123
  Transmission Date: 20070707
  Serious: Yes (Death)
  Sender: FDA-Public Use
  Company Number: US-SANOFI-SYNTHELABO-A03200606406

PATIENT
  Sex: Male

DRUGS (13)
  1. AMBIEN [Suspect]
     Indication: PAIN
     Dosage: UNK
     Route: 048
  2. LIDOPAIN [Suspect]
     Indication: PAIN
     Dosage: UNK
     Route: 062
  3. LIDODERM [Suspect]
     Indication: PAIN
     Dosage: UNK
     Route: 062
  4. DALMANE [Suspect]
     Indication: PAIN
     Dosage: UNK
     Route: 048
  5. RESTORIL [Suspect]
     Indication: PAIN
     Dosage: UNK
     Route: 048
  6. NORCO [Suspect]
     Indication: PAIN
     Dosage: UNK
     Route: 048
  7. VICODIN [Suspect]
     Indication: PAIN
     Dosage: UNK
     Route: 048
  8. LORTAB [Suspect]
     Indication: PAIN
     Dosage: UNK
     Route: 048
  9. LORCET-HD [Suspect]
     Indication: PAIN
     Dosage: UNK
     Route: 048
  10. TEMAZEPAM [Suspect]
     Dosage: UNK
     Route: 048
  11. ZONEGRAN [Concomitant]
     Dosage: UNK
     Route: 048
  12. PROPONAPAT [Concomitant]
     Dosage: UNK
     Route: 065
  13. TALWIN NX [Suspect]
     Indication: PAIN
     Dosage: UNK
     Route: 048

REACTIONS (11)
  - ABNORMAL DREAMS [None]
  - AMNESIA [None]
  - ANXIETY [None]
  - COMPLETED SUICIDE [None]
  - CONFUSIONAL STATE [None]
  - DEPRESSION [None]
  - HALLUCINATION [None]
  - MOOD ALTERED [None]
  - NERVOUSNESS [None]
  - SUICIDAL IDEATION [None]
  - VISUAL DISTURBANCE [None]
